FAERS Safety Report 17284591 (Version 1)
Quarter: 2020Q1

REPORT INFORMATION
  Report Type: Report from Study
  Country: CO (occurrence: CO)
  Receive Date: 20200117
  Receipt Date: 20200117
  Transmission Date: 20200409
  Serious: Yes (Hospitalization)
  Sender: FDA-Public Use
  Company Number: CO-JNJFOC-20190428553

PATIENT
  Age: 55 Year
  Sex: Male
  Weight: 86 kg

DRUGS (3)
  1. STELARA [Suspect]
     Active Substance: USTEKINUMAB
     Indication: PSORIASIS
     Dosage: 45 MG/0.5 ML
     Route: 058
     Dates: start: 20180506, end: 20180506
  2. STELARA [Suspect]
     Active Substance: USTEKINUMAB
     Dosage: 45 MG/0.5 ML
     Route: 058
     Dates: start: 20180606
  3. STELARA [Suspect]
     Active Substance: USTEKINUMAB
     Dosage: 45 MG/0.5 ML
     Route: 058
     Dates: start: 20180710, end: 20190710

REACTIONS (8)
  - Dysphonia [Not Recovered/Not Resolved]
  - Malaise [Recovering/Resolving]
  - Head injury [Unknown]
  - Thrombosis [Not Recovered/Not Resolved]
  - Muscular weakness [Not Recovered/Not Resolved]
  - Haematoma [Unknown]
  - Product dose omission [Unknown]
  - Psoriasis [Not Recovered/Not Resolved]

NARRATIVE: CASE EVENT DATE: 2019
